FAERS Safety Report 6428066-8 (Version None)
Quarter: 2009Q4

REPORT INFORMATION
  Report Type: 
  Country: None (occurrence: None)
  Receive Date: 20091105
  Receipt Date: 20091028
  Transmission Date: 20100525
  Serious: Yes (Hospitalization)
  Sender: FDA-Public Use
  Company Number: PHHY2009DE44811

PATIENT
  Sex: Female
  Weight: 95 kg

DRUGS (1)
  1. LEPONEX [Suspect]
     Indication: SCHIZOPHRENIA
     Dosage: 200 MG/DAY
     Route: 048

REACTIONS (3)
  - EMBOLISM [None]
  - MENTAL DISORDER [None]
  - THROMBOEMBOLECTOMY [None]
